FAERS Safety Report 10488570 (Version 1)
Quarter: 2014Q4

REPORT INFORMATION
  Report Type: Spontaneous
  Country: US (occurrence: None)
  Receive Date: 20141001
  Receipt Date: 20141001
  Transmission Date: 20150528
  Serious: Yes (Life-Threatening, Hospitalization)
  Sender: FDA-Public Use
  Company Number: None

PATIENT
  Age: 73 Year
  Sex: Male

DRUGS (2)
  1. ENOXAPARIN (GENERIC) [Suspect]
     Active Substance: ENOXAPARIN
     Dates: start: 20140323, end: 20140401
  2. WARFARIN [Suspect]
     Active Substance: WARFARIN
     Indication: PULMONARY EMBOLISM
     Route: 048
     Dates: start: 20140310, end: 20140401

REACTIONS (7)
  - Haematocrit decreased [None]
  - Pain [None]
  - Haemodynamic instability [None]
  - Arterial haemorrhage [None]
  - Hypotension [None]
  - Retroperitoneal haematoma [None]
  - Respiratory failure [None]

NARRATIVE: CASE EVENT DATE: 20140401
